FAERS Safety Report 4616519-4 (Version None)
Quarter: 2005Q1

REPORT INFORMATION
  Report Type: 
  Country: None (occurrence: None)
  Receive Date: 20050318
  Receipt Date: 20050308
  Transmission Date: 20050727
  Serious: Yes (Other)
  Sender: FDA-Public Use
  Company Number: 2005027384

PATIENT
  Age: 83 Year
  Sex: Female
  Weight: 68.0396 kg

DRUGS (10)
  1. DETROL LA [Suspect]
     Indication: ILL-DEFINED DISORDER
     Dosage: 4 MG (4 MG, QA), ORAL
     Route: 048
     Dates: start: 20030101, end: 20030901
  2. OXYBUTYNIN CHLORIDE [Suspect]
     Indication: ILL-DEFINED DISORDER
     Dates: start: 20030901
  3. DIOVAN HCT [Concomitant]
  4. OCUVITE (ASCORBIC ACID, RETINOL, TOCOPHEROL) [Concomitant]
  5. ASPIRIN [Concomitant]
  6. VITAMINS (VITAMINS) [Concomitant]
  7. ATENOLOL [Concomitant]
  8. CELECOXIB (CELECOXIB) [Concomitant]
  9. AMLODIPINE BESYLATE [Concomitant]
  10. HYDROCHLOROTHIAZIDE [Concomitant]

REACTIONS (11)
  - BLOOD PRESSURE INCREASED [None]
  - CATARACT [None]
  - CONDITION AGGRAVATED [None]
  - DIARRHOEA [None]
  - DRY EYE [None]
  - EAR DISCOMFORT [None]
  - FEELING ABNORMAL [None]
  - LIP DRY [None]
  - MENTAL IMPAIRMENT [None]
  - NASAL CONGESTION [None]
  - STRESS INCONTINENCE [None]
